FAERS Safety Report 12893728 (Version 1)
Quarter: 2016Q4

REPORT INFORMATION
  Report Type: Spontaneous
  Country: US (occurrence: US)
  Receive Date: 20161028
  Receipt Date: 20161028
  Transmission Date: 20170207
  Serious: Yes (Hospitalization)
  Sender: FDA-Public Use
  Company Number: US-CELGENEUS-USA-2016106119

PATIENT
  Age: 55 Year
  Sex: Female

DRUGS (5)
  1. THALOMID [Suspect]
     Active Substance: THALIDOMIDE
     Dosage: 100-50MG
     Route: 048
     Dates: start: 201306
  2. THALOMID [Suspect]
     Active Substance: THALIDOMIDE
     Dosage: 100-200MG
     Route: 048
     Dates: start: 200410
  3. THALOMID [Suspect]
     Active Substance: THALIDOMIDE
     Indication: APHTHOUS ULCER
     Route: 048
     Dates: start: 200301, end: 2003
  4. THALOMID [Suspect]
     Active Substance: THALIDOMIDE
     Route: 048
     Dates: start: 201412
  5. DAPSONE. [Suspect]
     Active Substance: DAPSONE
     Indication: PRODUCT USED FOR UNKNOWN INDICATION
     Route: 065

REACTIONS (1)
  - Red blood cell count decreased [Unknown]

NARRATIVE: CASE EVENT DATE: 201511
